FAERS Safety Report 18040457 (Version 1)
Quarter: 2020Q3

REPORT INFORMATION
  Report Type: Spontaneous
  Country: CA (occurrence: CA)
  Receive Date: 20200717
  Receipt Date: 20200717
  Transmission Date: 20201103
  Serious: Yes (Death, Hospitalization)
  Sender: FDA-Public Use
  Company Number: CA-CIPHER-2020-CA-001002

PATIENT
  Age: 40 Year
  Sex: Female

DRUGS (7)
  1. CAMBIA [Suspect]
     Active Substance: DICLOFENAC POTASSIUM
     Indication: MUSCLE STRAIN
     Dosage: UNKNOWN DOSE
     Route: 048
  2. HCTZ [Concomitant]
     Active Substance: HYDROCHLOROTHIAZIDE
  3. NAPROXEN. [Concomitant]
     Active Substance: NAPROXEN
  4. TRAMADOL HYDROCHLORIDE. [Suspect]
     Active Substance: TRAMADOL HYDROCHLORIDE
     Indication: PRODUCT USED FOR UNKNOWN INDICATION
     Dosage: UNKNOWN DOSE
     Route: 065
  5. TRAMACET [Concomitant]
     Active Substance: ACETAMINOPHEN\TRAMADOL
  6. FLEXERIL [Concomitant]
     Active Substance: CYCLOBENZAPRINE HYDROCHLORIDE
  7. COVERSYL [Concomitant]
     Active Substance: PERINDOPRIL

REACTIONS (4)
  - Aneurysm ruptured [Fatal]
  - Off label use [Fatal]
  - Subarachnoid haemorrhage [Fatal]
  - Hypertension [Fatal]
